FAERS Safety Report 25489825 (Version 2)
Quarter: 2025Q3

REPORT INFORMATION
  Report Type: Spontaneous
  Country: US (occurrence: US)
  Receive Date: 20250627
  Receipt Date: 20250730
  Transmission Date: 20251021
  Serious: No
  Sender: NEUROCRINE BIOSCIENCES
  Company Number: US-NEUROCRINE BIOSCIENCES INC.-2025NBI08149

PATIENT
  Age: 94 Year
  Sex: Female

DRUGS (3)
  1. INGREZZA SPRINKLE [Suspect]
     Active Substance: VALBENAZINE DITOSYLATE
     Indication: Tardive dyskinesia
     Dates: start: 20250615
  2. INGREZZA SPRINKLE [Suspect]
     Active Substance: VALBENAZINE DITOSYLATE
  3. RISPERDAL [Concomitant]
     Active Substance: RISPERIDONE
     Indication: Dementia

REACTIONS (2)
  - Somnolence [Recovered/Resolved]
  - Off label use [Unknown]
